FAERS Safety Report 4305942-3 (Version None)
Quarter: 2004Q1

REPORT INFORMATION
  Report Type: 
  Country: None (occurrence: None)
  Receive Date: 20040225
  Receipt Date: 20040205
  Transmission Date: 20041129
  Serious: Yes (Death, Hospitalization)
  Sender: FDA-Public Use
  Company Number: CA_031106423

PATIENT
  Sex: Male

DRUGS (1)
  1. HUMATROPE [Suspect]
     Indication: BLOOD GROWTH HORMONE DECREASED
     Dosage: 2.4 MG/ 6 DAYS WEEK
     Dates: start: 19970904, end: 20031114

REACTIONS (1)
  - ASTROCYTOMA [None]
